FAERS Safety Report 8164368-5 (Version None)
Quarter: 2012Q1

REPORT INFORMATION
  Report Type: 
  Country: None (occurrence: None)
  Receive Date: 20120224
  Receipt Date: 20120216
  Transmission Date: 20120608
  Serious: Yes (Other)
  Sender: FDA-Public Use
  Company Number: PHHY2012US013491

PATIENT
  Age: 50 Year
  Sex: Female

DRUGS (4)
  1. HEPARIN [Suspect]
     Dosage: UNK UKN, UNK
     Route: 041
  2. CLOPIDOGREL [Suspect]
     Dosage: 75 MG, QD
  3. CLOPIDOGREL [Suspect]
     Dosage: 600 MG, QD
  4. ACETYLSALICYLIC ACID SRT [Suspect]
     Dosage: 325 MG, QD

REACTIONS (10)
  - COUGH [None]
  - HAEMODYNAMIC INSTABILITY [None]
  - APHASIA [None]
  - THROMBOSIS IN DEVICE [None]
  - GRAND MAL CONVULSION [None]
  - HAEMORRHAGE INTRACRANIAL [None]
  - CEREBRAL INFARCTION [None]
  - BLOOD PRESSURE INCREASED [None]
  - ARTERIAL HAEMORRHAGE [None]
  - HEMIPLEGIA [None]
